FAERS Safety Report 16150568 (Version 6)
Quarter: 2021Q1

REPORT INFORMATION
  Report Type: Spontaneous
  Country: JP (occurrence: JP)
  Receive Date: 20190403
  Receipt Date: 20210112
  Transmission Date: 20210419
  Serious: Yes (Life-Threatening, Hospitalization, Other)
  Sender: FDA-Public Use
  Company Number: JP-BRISTOL-MYERS SQUIBB COMPANY-BMS-2018-124710

PATIENT
  Age: 76 Year
  Sex: Female
  Weight: 37 kg

DRUGS (6)
  1. OPDIVO [Suspect]
     Active Substance: NIVOLUMAB
     Dosage: 120 MILLIGRAM, QD
     Route: 041
     Dates: start: 20180920
  2. OPDIVO [Suspect]
     Active Substance: NIVOLUMAB
     Dosage: 240 MILLIGRAM, QD
     Route: 041
     Dates: start: 20190124, end: 20190307
  3. OPDIVO [Suspect]
     Active Substance: NIVOLUMAB
     Dosage: 120 MILLIGRAM
     Route: 041
     Dates: start: 20190328, end: 20201224
  4. OPDIVO [Suspect]
     Active Substance: NIVOLUMAB
     Dosage: 240 MILLIGRAM, QD
     Route: 041
     Dates: start: 20180110
  5. OPDIVO [Suspect]
     Active Substance: NIVOLUMAB
     Dosage: 240 MILLIGRAM, QD
     Route: 041
     Dates: start: 20181018, end: 20181226
  6. OPDIVO [Suspect]
     Active Substance: NIVOLUMAB
     Indication: GASTRIC CANCER
     Dosage: 120 MILLIGRAM, QD
     Route: 041

REACTIONS (4)
  - Condition aggravated [Recovering/Resolving]
  - Atrial fibrillation [Recovering/Resolving]
  - Cardiomegaly [Recovering/Resolving]
  - Thrombotic cerebral infarction [Recovering/Resolving]

NARRATIVE: CASE EVENT DATE: 20181004
